FAERS Safety Report 7971207-1 (Version None)
Quarter: 2011Q4

REPORT INFORMATION
  Report Type: 
  Country: None (occurrence: None)
  Receive Date: 20111212
  Receipt Date: 20111205
  Transmission Date: 20120403
  Serious: Yes (Other)
  Sender: FDA-Public Use
  Company Number: PHHY2011CA106646

PATIENT
  Sex: Female

DRUGS (2)
  1. ZOLEDRONOC ACID [Suspect]
     Indication: OSTEOPOROSIS
     Dosage: 5 MG, UNK
     Route: 042
     Dates: start: 20091105
  2. ZOLEDRONOC ACID [Suspect]
     Dosage: 5 MG, UNK
     Route: 042
     Dates: start: 20101102

REACTIONS (1)
  - UPPER LIMB FRACTURE [None]
